FAERS Safety Report 9430138 (Version 4)
Quarter: 2013Q4

REPORT INFORMATION
  Report Type: Spontaneous
  Country: JP (occurrence: JP)
  Receive Date: 20130730
  Receipt Date: 20131001
  Transmission Date: 20140711
  Serious: Yes (Hospitalization, Other)
  Sender: FDA-Public Use
  Company Number: JP-009507513-1307JPN015365

PATIENT
  Age: 87 Year
  Sex: Female

DRUGS (3)
  1. JANUVIA TABLETS 50MG [Suspect]
     Dosage: 50 MG, QD
     Route: 048
     Dates: start: 201107
  2. MAGMITT [Concomitant]
     Dosage: DAILY DOSE UNKNOWN
  3. AMLODIPINE [Concomitant]
     Dosage: DAILY DOSE UNKNOWN

REACTIONS (7)
  - Intestinal perforation [Unknown]
  - Large intestine perforation [Unknown]
  - Ileus [Recovered/Resolved]
  - Volvulus [Unknown]
  - Abscess [Unknown]
  - Surgery [Recovered/Resolved]
  - Enterostomy [Unknown]
